FAERS Safety Report 20345403 (Version 1)
Quarter: 2022Q1

REPORT INFORMATION
  Report Type: Spontaneous
  Country: PT (occurrence: PT)
  Receive Date: 20220118
  Receipt Date: 20220118
  Transmission Date: 20220423
  Serious: Yes (Death, Life-Threatening, Hospitalization, Other)
  Sender: FDA-Public Use
  Company Number: PT-LUPIN PHARMACEUTICALS INC.-2022-00412

PATIENT
  Age: 65 Year
  Sex: Male

DRUGS (14)
  1. METHYLPREDNISOLONE [Suspect]
     Active Substance: METHYLPREDNISOLONE
     Indication: Immunosuppressant drug therapy
     Dosage: UNK
     Route: 065
  2. THYMOGLOBULIN [Suspect]
     Active Substance: LAPINE T-LYMPHOCYTE IMMUNE GLOBULIN
     Indication: Immunosuppressant drug therapy
     Dosage: 150 MILLIGRAM
     Route: 065
  3. THYMOGLOBULIN [Suspect]
     Active Substance: LAPINE T-LYMPHOCYTE IMMUNE GLOBULIN
     Dosage: 2.9 MILLIGRAM/KILOGRAM
     Route: 065
  4. TACROLIMUS [Suspect]
     Active Substance: TACROLIMUS
     Indication: Immunosuppressant drug therapy
     Dosage: UNK
     Route: 065
  5. PREDNISOLONE [Suspect]
     Active Substance: PREDNISOLONE
     Indication: Immunosuppressant drug therapy
     Dosage: UNK
     Route: 065
  6. NOREPINEPHRINE [Concomitant]
     Active Substance: NOREPINEPHRINE
     Indication: Septic shock
     Dosage: UNK, HIGH-DOSE
     Route: 065
  7. MEROPENEM [Concomitant]
     Active Substance: MEROPENEM
     Indication: Enterococcal infection
     Dosage: UNK
     Route: 065
  8. MEROPENEM [Concomitant]
     Active Substance: MEROPENEM
     Indication: Escherichia infection
  9. TIGECYCLINE [Concomitant]
     Active Substance: TIGECYCLINE
     Indication: Enterococcal infection
     Dosage: UNK
     Route: 065
  10. TIGECYCLINE [Concomitant]
     Active Substance: TIGECYCLINE
     Indication: Escherichia infection
  11. TIGECYCLINE [Concomitant]
     Active Substance: TIGECYCLINE
     Indication: Morganella infection
  12. ANIDULAFUNGIN [Concomitant]
     Active Substance: ANIDULAFUNGIN
     Indication: Enterococcal infection
     Dosage: UNK
     Route: 065
  13. ANIDULAFUNGIN [Concomitant]
     Active Substance: ANIDULAFUNGIN
     Indication: Escherichia infection
  14. ANIDULAFUNGIN [Concomitant]
     Active Substance: ANIDULAFUNGIN
     Indication: Morganella infection

REACTIONS (15)
  - Enterococcal infection [Fatal]
  - Escherichia infection [Fatal]
  - Septic shock [Fatal]
  - Morganella infection [Fatal]
  - Hypotension [Fatal]
  - Fournier^s gangrene [Fatal]
  - Anaemia [Fatal]
  - Perinephric abscess [Fatal]
  - Hyperlactacidaemia [Fatal]
  - Proteus infection [Fatal]
  - Klebsiella infection [Fatal]
  - Candida infection [Fatal]
  - Renal impairment [Recovering/Resolving]
  - Hepatic function abnormal [Recovering/Resolving]
  - Cardiac dysfunction [Recovering/Resolving]
